FAERS Safety Report 7026022-2 (Version None)
Quarter: 2010Q4

REPORT INFORMATION
  Report Type: 
  Country: None (occurrence: None)
  Receive Date: 20101004
  Receipt Date: 20100922
  Transmission Date: 20110411
  Serious: No
  Sender: FDA-Public Use
  Company Number: US-BIOGENIDEC-2010BI033565

PATIENT
  Age: 33 Year
  Sex: Male

DRUGS (1)
  1. TYSABRI [Suspect]
     Indication: MULTIPLE SCLEROSIS
     Route: 042
     Dates: start: 20090928

REACTIONS (6)
  - DYSPHEMIA [None]
  - EYE SWELLING [None]
  - HERPES ZOSTER [None]
  - IMMUNOSUPPRESSION [None]
  - MENTAL IMPAIRMENT [None]
  - SKIN FISSURES [None]
